FAERS Safety Report 6494394-3 (Version None)
Quarter: 2009Q4

REPORT INFORMATION
  Report Type: 
  Country: None (occurrence: None)
  Receive Date: 20091214
  Receipt Date: 20090213
  Transmission Date: 20100525
  Serious: No
  Sender: FDA-Public Use
  Company Number: US-BRISTOL-MYERS SQUIBB COMPANY-14505945

PATIENT
  Age: 49 Year
  Sex: Male

DRUGS (1)
  1. ABILIFY [Suspect]
     Indication: BIPOLAR DISORDER
     Dosage: REDUCED TO 10MG QD AND INCREASED TO 20MG QD.

REACTIONS (3)
  - ARTHRALGIA [None]
  - BLOOD GLUCOSE INCREASED [None]
  - WEIGHT INCREASED [None]
